FAERS Safety Report 18998830 (Version 1)
Quarter: 2021Q1

REPORT INFORMATION
  Report Type: Report from Study
  Country: US (occurrence: US)
  Receive Date: 20210311
  Receipt Date: 20210311
  Transmission Date: 20210420
  Serious: Yes (Hospitalization)
  Sender: FDA-Public Use
  Company Number: US-JNJFOC-20210226578

PATIENT
  Age: 84 Year
  Sex: Female
  Weight: 47.7 kg

DRUGS (1)
  1. MACITENTAN [Suspect]
     Active Substance: MACITENTAN
     Indication: PULMONARY ARTERIAL HYPERTENSION
     Route: 048
     Dates: start: 20210202

REACTIONS (5)
  - Renal impairment [Unknown]
  - Dyspnoea [Unknown]
  - Contusion [Unknown]
  - Pleural effusion [Unknown]
  - Insomnia [Unknown]

NARRATIVE: CASE EVENT DATE: 20210221
